FAERS Safety Report 21925643 (Version 1)
Quarter: 2023Q1

REPORT INFORMATION
  Report Type: Spontaneous
  Country: US (occurrence: None)
  Receive Date: 20230127
  Receipt Date: 20230127
  Transmission Date: 20230418
  Serious: No
  Sender: FDA-Public Use
  Company Number: None

PATIENT
  Age: 76 Year
  Sex: Male
  Weight: 87.82 kg

DRUGS (16)
  1. CAPECITABINE [Suspect]
     Active Substance: CAPECITABINE
     Indication: Colon cancer
     Dosage: FREQUENCY : TWICE A DAY;?
     Route: 048
  2. ATORVASTATIN [Concomitant]
     Active Substance: ATORVASTATIN
  3. BYSTOLIC [Concomitant]
     Active Substance: NEBIVOLOL HYDROCHLORIDE
  4. CEFTRIAXONE [Concomitant]
     Active Substance: CEFTRIAXONE
  5. DIAZEPAM [Concomitant]
     Active Substance: DIAZEPAM
  6. ELIQUIS [Concomitant]
     Active Substance: APIXABAN
  7. ENTRESTO [Concomitant]
     Active Substance: SACUBITRIL\VALSARTAN
  8. LASIX [Concomitant]
     Active Substance: FUROSEMIDE
  9. LATANOPROST [Concomitant]
     Active Substance: LATANOPROST
  10. OXALIPLATIN [Concomitant]
     Active Substance: OXALIPLATIN
  11. POTASSIUM [Concomitant]
     Active Substance: POTASSIUM
  12. PROCHLORPERAZINE [Concomitant]
     Active Substance: PROCHLORPERAZINE
  13. SPIRONOLACTONE [Concomitant]
     Active Substance: SPIRONOLACTONE
  14. TYLENOL [Concomitant]
     Active Substance: ACETAMINOPHEN
  15. TYLENOL [Concomitant]
     Active Substance: ACETAMINOPHEN
  16. VITAMIN C [Concomitant]
     Active Substance: ASCORBIC ACID

REACTIONS (2)
  - Cancer surgery [None]
  - Therapy interrupted [None]
